FAERS Safety Report 10725947 (Version 2)
Quarter: 2015Q1

REPORT INFORMATION
  Report Type: Spontaneous
  Country: GB (occurrence: GB)
  Receive Date: 20150121
  Receipt Date: 20150324
  Transmission Date: 20150721
  Serious: Yes (Death, Hospitalization, Other)
  Sender: FDA-Public Use
  Company Number: GB-AMGEN-GBRSP2015004352

PATIENT
  Age: 76 Year
  Sex: Female

DRUGS (4)
  1. CAPECITABINE. [Concomitant]
     Active Substance: CAPECITABINE
     Dosage: UNK
     Dates: start: 201304, end: 201306
  2. ADCAL                              /00056901/ [Concomitant]
     Active Substance: CARBAZOCHROME
  3. PROLIA [Suspect]
     Active Substance: DENOSUMAB
     Indication: OSTEOPOROSIS POSTMENOPAUSAL
     Dosage: 60 MG, Q6MO
     Route: 058
     Dates: start: 20120628, end: 20131213
  4. OXALIPLATIN. [Concomitant]
     Active Substance: OXALIPLATIN
     Dosage: UNK
     Dates: start: 201304, end: 201306

REACTIONS (19)
  - Terminal state [Unknown]
  - Weight decreased [Unknown]
  - Anxiety [Unknown]
  - Confusional state [Recovering/Resolving]
  - Abdominal pain [Unknown]
  - Gastrointestinal pain [Unknown]
  - Increased bronchial secretion [Unknown]
  - Enterovesical fistula [Unknown]
  - Pain [Unknown]
  - Mobility decreased [Unknown]
  - Sepsis [Recovered/Resolved]
  - Lethargy [Unknown]
  - Decreased activity [Unknown]
  - Paranoia [Recovering/Resolving]
  - Haemorrhage [Unknown]
  - Rectal adenocarcinoma [Fatal]
  - Anaemia [Unknown]
  - Vomiting [Unknown]
  - Malaise [Unknown]

NARRATIVE: CASE EVENT DATE: 201407
